FAERS Safety Report 20716955 (Version 5)
Quarter: 2024Q4

REPORT INFORMATION
  Report Type: Report from Study
  Country: CA (occurrence: CA)
  Receive Date: 20220416
  Receipt Date: 20241126
  Transmission Date: 20250114
  Serious: Yes (Other)
  Sender: CURRAX PHARMACEUTICALS
  Company Number: CA-BAUSCH-BL-2022-008810

PATIENT
  Age: 46 Year
  Sex: Female

DRUGS (10)
  1. CONTRAVE [Suspect]
     Active Substance: BUPROPION HYDROCHLORIDE\NALTREXONE HYDROCHLORIDE
     Indication: Weight control
     Dosage: 90/8MG; 1 TAB Q AM (IN THE MORNING)
     Route: 048
     Dates: start: 20220324, end: 20220330
  2. CONTRAVE [Suspect]
     Active Substance: BUPROPION HYDROCHLORIDE\NALTREXONE HYDROCHLORIDE
     Dosage: 90/8MG; 1 TAB Q AM (IN THE MORNING), 1 TAB Q PM (IN THE EVENING)
     Route: 048
     Dates: start: 20220331, end: 2022
  3. CONTRAVE [Suspect]
     Active Substance: BUPROPION HYDROCHLORIDE\NALTREXONE HYDROCHLORIDE
     Dosage: 90/8MG; 2 TAB Q AM (IN THE MORNING), 1 TAB Q PM (IN THE EVENING)
     Route: 048
     Dates: start: 202204, end: 20220406
  4. CONTRAVE [Suspect]
     Active Substance: BUPROPION HYDROCHLORIDE\NALTREXONE HYDROCHLORIDE
     Dosage: 90/8MG; 2 TAB Q AM (IN THE MORNING), 2 TAB Q PM (IN THE EVENING)
     Route: 048
     Dates: start: 20220407
  5. PREVACID [Concomitant]
     Active Substance: LANSOPRAZOLE
     Indication: Gastrooesophageal reflux disease
     Dosage: 1 IN 12 HR
     Route: 048
  6. ELIQUIS [Concomitant]
     Active Substance: APIXABAN
     Indication: Thrombosis
     Dosage: 2.5 MG,1 IN 24 HR
     Route: 048
  7. DANTRIUM [Concomitant]
     Active Substance: DANTROLENE SODIUM
     Indication: Muscle spasms
     Dosage: 1 IN 24 HR
     Route: 048
  8. DANTRIUM [Concomitant]
     Active Substance: DANTROLENE SODIUM
     Indication: Multiple sclerosis
  9. TIZANIDINE [Concomitant]
     Active Substance: TIZANIDINE
     Indication: Multiple sclerosis
     Dosage: 1 IN 24 HR
     Route: 048
  10. TIZANIDINE [Concomitant]
     Active Substance: TIZANIDINE
     Indication: Muscle spasms

REACTIONS (11)
  - Colostomy [Unknown]
  - Multiple sclerosis [Not Recovered/Not Resolved]
  - Monoplegia [Not Recovered/Not Resolved]
  - Feeding disorder [Unknown]
  - Weight increased [Not Recovered/Not Resolved]
  - Limb injury [Recovered/Resolved]
  - Gastrointestinal stoma complication [Not Recovered/Not Resolved]
  - Dysphagia [Not Recovered/Not Resolved]
  - Urinary tract infection [Not Recovered/Not Resolved]
  - Constipation [Recovered/Resolved]
  - Diarrhoea [Unknown]

NARRATIVE: CASE EVENT DATE: 20220404
